FAERS Safety Report 7973883-6 (Version None)
Quarter: 2011Q4

REPORT INFORMATION
  Report Type: 
  Country: None (occurrence: None)
  Receive Date: 20111213
  Receipt Date: 20111207
  Transmission Date: 20120403
  Serious: Yes (Hospitalization, Other)
  Sender: FDA-Public Use
  Company Number: MX-BRISTOL-MYERS SQUIBB COMPANY-15534233

PATIENT
  Age: 42 Year
  Sex: Male

DRUGS (6)
  1. ASPIRIN [Concomitant]
  2. METFORMIN HCL [Suspect]
     Indication: TYPE 2 DIABETES MELLITUS
  3. GLYBURIDE [Suspect]
     Indication: TYPE 2 DIABETES MELLITUS
  4. BLINDED: SAXAGLIPTIN [Suspect]
     Indication: TYPE 2 DIABETES MELLITUS
     Dates: start: 20101016
  5. BLINDED: PLACEBO [Suspect]
     Indication: TYPE 2 DIABETES MELLITUS
     Dates: start: 20101016
  6. NPH INSULIN [Suspect]
     Indication: TYPE 2 DIABETES MELLITUS
     Dates: end: 20110214

REACTIONS (1)
  - OESOPHAGEAL CANDIDIASIS [None]
